FAERS Safety Report 7327714-8 (Version None)
Quarter: 2011Q1

REPORT INFORMATION
  Report Type: 
  Country: None (occurrence: None)
  Receive Date: 20110303
  Receipt Date: 20100909
  Transmission Date: 20110831
  Serious: Yes (Hospitalization)
  Sender: FDA-Public Use
  Company Number: US-BAYER-201018558NA

PATIENT
  Sex: Female

DRUGS (6)
  1. YASMIN [Suspect]
     Indication: PRODUCT USED FOR UNKNOWN INDICATION
     Dosage: UNK UNK, UNK
     Route: 048
     Dates: start: 20050101, end: 20090201
  2. YAZ [Suspect]
     Indication: PRODUCT USED FOR UNKNOWN INDICATION
     Route: 048
  3. OCELLA [Suspect]
     Dosage: UNK
     Dates: start: 20080701, end: 20090201
  4. PERCOCET [Concomitant]
  5. ZELNORM [Concomitant]
  6. ADVIL LIQUI-GELS [Concomitant]
     Dosage: UNK
     Dates: start: 19970101

REACTIONS (3)
  - CHOLECYSTITIS CHRONIC [None]
  - ABDOMINAL PAIN UPPER [None]
  - CHOLELITHIASIS [None]
